FAERS Safety Report 4388288-7 (Version None)
Quarter: 2004Q2

REPORT INFORMATION
  Report Type: 
  Country: None (occurrence: None)
  Receive Date: 20040625
  Receipt Date: 20040615
  Transmission Date: 20050107
  Serious: Yes (Other)
  Sender: FDA-Public Use
  Company Number: HQWYE532521JUN04

PATIENT

DRUGS (3)
  1. RAPAMUNE [Suspect]
     Indication: IMMUNOSUPPRESSANT DRUG THERAPY
     Dosage: 0.04 MG/KG
  2. PREDNISONE (PREDNISONE), UNSPECIFIED, UNKNOWN [Concomitant]
  3. CYCLOSPORINE [Suspect]
     Indication: IMMUNOSUPPRESSANT DRUG THERAPY
     Dosage: 7.9 MG/KG

REACTIONS (1)
  - THROMBOTIC MICROANGIOPATHY [None]
